FAERS Safety Report 5185187-8 (Version None)
Quarter: 2006Q4

REPORT INFORMATION
  Report Type: 
  Country: None (occurrence: None)
  Receive Date: 20061220
  Receipt Date: 20060619
  Transmission Date: 20070319
  Serious: No
  Sender: FDA-Public Use
  Company Number: US-GLAXOSMITHKLINE-A0609388A

PATIENT
  Age: 68 Year

DRUGS (2)
  1. NICODERM CQ [Suspect]
     Dates: start: 20060402
  2. EQUATE NICOTINE GUM 2MG [Suspect]

REACTIONS (2)
  - APPLICATION SITE REACTION [None]
  - NAUSEA [None]
